FAERS Safety Report 12441203 (Version 1)
Quarter: 2016Q2

REPORT INFORMATION
  Report Type: Spontaneous
  Country: DE (occurrence: DE)
  Receive Date: 20160607
  Receipt Date: 20160607
  Transmission Date: 20160815
  Serious: Yes (Congenital Anomaly)
  Sender: FDA-Public Use
  Company Number: DE-009507513-1606DEU001920

PATIENT
  Age: 1 Day
  Sex: Male
  Weight: 3.98 kg

DRUGS (4)
  1. L THYROX [Concomitant]
     Dosage: 50 MICROGRAM, QD
  2. FOLIC ACID. [Concomitant]
     Active Substance: FOLIC ACID
     Dosage: UNK
     Dates: start: 20150311, end: 20151216
  3. MONOPROST [Suspect]
     Active Substance: LATANOPROST
     Dosage: EACH EYE 1 DROP PER DAY
     Route: 064
     Dates: start: 20150311, end: 20151216
  4. TRUSOPT [Suspect]
     Active Substance: DORZOLAMIDE HYDROCHLORIDE
     Dosage: EACH EYE 3 X 1 DROP PER DAY
     Route: 064
     Dates: start: 20150311, end: 20150311

REACTIONS (2)
  - Foetal exposure during pregnancy [Unknown]
  - Limb malformation [Unknown]

NARRATIVE: CASE EVENT DATE: 20151216
